FAERS Safety Report 17535411 (Version 3)
Quarter: 2021Q1

REPORT INFORMATION
  Report Type: Spontaneous
  Country: US (occurrence: US)
  Receive Date: 20200313
  Receipt Date: 20210212
  Transmission Date: 20210419
  Serious: No
  Sender: FDA-Public Use
  Company Number: US-GLAXOSMITHKLINE-US2020039244

PATIENT
  Sex: Male

DRUGS (3)
  1. FLOVENT HFA [Suspect]
     Active Substance: FLUTICASONE PROPIONATE
     Indication: PRODUCT USED FOR UNKNOWN INDICATION
     Dosage: UNK
     Route: 055
  2. FLOVENT HFA [Suspect]
     Active Substance: FLUTICASONE PROPIONATE
  3. FLOVENT HFA [Suspect]
     Active Substance: FLUTICASONE PROPIONATE
     Indication: PRODUCT USED FOR UNKNOWN INDICATION
     Dosage: UNK
     Route: 055
     Dates: start: 2019

REACTIONS (7)
  - Wrong technique in device usage process [Unknown]
  - Product storage error [Unknown]
  - Oropharyngeal pain [Recovered/Resolved]
  - Wrong technique in product usage process [Unknown]
  - Oropharyngeal discomfort [Recovered/Resolved]
  - Product complaint [Unknown]
  - Extra dose administered [Unknown]
